FAERS Safety Report 4358526-5 (Version None)
Quarter: 2004Q2

REPORT INFORMATION
  Report Type: 
  Country: None (occurrence: None)
  Receive Date: 20040512
  Receipt Date: 20040510
  Transmission Date: 20050107
  Serious: Yes (Hospitalization)
  Sender: FDA-Public Use
  Company Number: 200411508GDS

PATIENT
  Age: 45 Year

DRUGS (1)
  1. ASPIRIN [Suspect]
     Indication: INFLUENZA LIKE ILLNESS

REACTIONS (11)
  - FAECES DISCOLOURED [None]
  - GASTROINTESTINAL HAEMORRHAGE [None]
  - HAEMATOCRIT DECREASED [None]
  - HYPERHIDROSIS [None]
  - INTESTINAL ULCER [None]
  - LIPOMA [None]
  - MELAENA [None]
  - PALLOR [None]
  - RED BLOOD CELL COUNT DECREASED [None]
  - SHOCK HAEMORRHAGIC [None]
  - TACHYCARDIA [None]
